FAERS Safety Report 15268460 (Version 1)
Quarter: 2018Q3

REPORT INFORMATION
  Report Type: Spontaneous
  Country: US (occurrence: US)
  Receive Date: 20180725
  Receipt Date: 20180725
  Transmission Date: 20181010
  Serious: No
  Sender: FDA-Public Use
  Company Number: None

PATIENT
  Age: 68 Year
  Sex: Male

DRUGS (1)
  1. BACLOFEN. [Suspect]
     Active Substance: BACLOFEN
     Indication: PAIN
     Dates: start: 20180611, end: 20180611

REACTIONS (3)
  - Dialysis [None]
  - Confusional state [None]
  - Mental disorder [None]

NARRATIVE: CASE EVENT DATE: 20180611
